FAERS Safety Report 7953712-7 (Version None)
Quarter: 2011Q4

REPORT INFORMATION
  Report Type: 
  Country: None (occurrence: None)
  Receive Date: 20111202
  Receipt Date: 20111130
  Transmission Date: 20120403
  Serious: Yes (Other)
  Sender: FDA-Public Use
  Company Number: US-JNJFOC-20100805154

PATIENT
  Sex: Female

DRUGS (5)
  1. LEVAQUIN [Suspect]
     Indication: SINUS DISORDER
     Route: 048
     Dates: start: 20080424, end: 20080426
  2. LEVAQUIN [Suspect]
     Indication: EAR PAIN
     Route: 048
     Dates: start: 20080424, end: 20080426
  3. FLUOROQUINOLONE [Suspect]
     Indication: INFECTION
  4. STEROIDS NOS [Suspect]
     Indication: PRODUCT USED FOR UNKNOWN INDICATION
  5. LEVAQUIN [Suspect]
     Indication: EAR DISCOMFORT
     Route: 048
     Dates: start: 20080424, end: 20080426

REACTIONS (2)
  - OSTEOARTHRITIS [None]
  - TENDON RUPTURE [None]
